FAERS Safety Report 8176025-X (Version None)
Quarter: 2012Q1

REPORT INFORMATION
  Report Type: 
  Country: None (occurrence: None)
  Receive Date: 20120301
  Receipt Date: 20120217
  Transmission Date: 20120608
  Serious: Yes (Hospitalization, Other)
  Sender: FDA-Public Use
  Company Number: US-SANOFI-AVENTIS-2012SA013016

PATIENT
  Age: 48 Year
  Sex: Female
  Weight: 89 kg

DRUGS (22)
  1. MIRTAZAPINE [Suspect]
     Indication: INSOMNIA
     Route: 048
  2. METHOCARBAMOL [Suspect]
     Route: 048
  3. AMLODIPINE BESYLATE [Suspect]
     Indication: LUNG DISORDER
     Route: 048
  4. SIMVASTATIN [Suspect]
     Route: 048
  5. ALL OTHER THERAPEUTIC PRODUCTS [Suspect]
     Indication: DEPRESSION
     Route: 065
  6. METHOCARBAMOL [Suspect]
     Route: 048
  7. AMLODIPINE BESYLATE [Suspect]
     Route: 048
  8. ISOSORBIDE MONONITRATE [Suspect]
     Route: 048
  9. DEPAKOTE [Suspect]
     Route: 048
  10. ATENOLOL [Suspect]
     Route: 048
  11. INSULIN HUMAN [Suspect]
     Dosage: DOSE:24 UNIT(S)
     Route: 065
  12. LOMOTIL [Suspect]
     Indication: CROHN'S DISEASE
     Route: 048
  13. LACTULOSE [Suspect]
     Indication: CROHN'S DISEASE
     Route: 065
  14. PHENYTOIN [Suspect]
     Route: 048
  15. ASPIRIN [Suspect]
     Indication: CHEST PAIN
     Route: 065
  16. LANTUS [Suspect]
     Dosage: 80 UNITS IN THE MORNING AND 90 UNITS AT NIGHT
     Route: 065
  17. POTASSIUM CHLORIDE [Suspect]
     Route: 065
  18. FUROSEMIDE [Suspect]
     Indication: DIURETIC THERAPY
     Route: 048
  19. ACETAMINOPHEN [Suspect]
     Route: 065
  20. ZANTAC [Suspect]
     Route: 065
  21. ATIVAN [Suspect]
     Indication: NERVOUSNESS
     Route: 048
  22. NITROSTAT [Suspect]
     Indication: CHEST PAIN
     Route: 065

REACTIONS (4)
  - BEDRIDDEN [None]
  - AMNESIA [None]
  - EMPHYSEMA [None]
  - CHRONIC OBSTRUCTIVE PULMONARY DISEASE [None]
